FAERS Safety Report 11211597 (Version 1)
Quarter: 2015Q2

REPORT INFORMATION
  Report Type: Spontaneous
  Country: FR (occurrence: FR)
  Receive Date: 20150623
  Receipt Date: 20150623
  Transmission Date: 20150821
  Serious: Yes (Hospitalization)
  Sender: FDA-Public Use
  Company Number: FR-ROCHE-1597586

PATIENT
  Age: 64 Year
  Sex: Male

DRUGS (11)
  1. METFORMIN [Concomitant]
     Active Substance: METFORMIN HYDROCHLORIDE
     Route: 065
  2. PROCORALAN [Concomitant]
     Active Substance: IVABRADINE
  3. LANTUS [Concomitant]
     Active Substance: INSULIN GLARGINE
  4. TAHOR [Concomitant]
     Active Substance: ATORVASTATIN CALCIUM
  5. AMIODARONE [Concomitant]
     Active Substance: AMIODARONE
  6. VANCOMYCINE SANDOZ [Suspect]
     Active Substance: VANCOMYCIN
     Indication: OSTEITIS
     Route: 041
     Dates: start: 20150520, end: 20150522
  7. DIAMICRON [Concomitant]
     Active Substance: GLICLAZIDE
  8. ENALAPRIL [Concomitant]
     Active Substance: ENALAPRIL
  9. ROCEPHINE [Suspect]
     Active Substance: CEFTRIAXONE SODIUM
     Indication: OSTEITIS
     Route: 041
     Dates: start: 20150520, end: 20150522
  10. KARDEGIC [Concomitant]
     Active Substance: ASPIRIN LYSINE
  11. PARACETAMOL [Concomitant]
     Active Substance: ACETAMINOPHEN

REACTIONS (2)
  - Hepatocellular injury [Recovering/Resolving]
  - Acute kidney injury [Recovered/Resolved]

NARRATIVE: CASE EVENT DATE: 20150522
